FAERS Safety Report 9121527 (Version 1)
Quarter: 2013Q1

REPORT INFORMATION
  Report Type: Spontaneous
  Country: IT (occurrence: IT)
  Receive Date: 20130227
  Receipt Date: 20130227
  Transmission Date: 20140127
  Serious: Yes (Other)
  Sender: FDA-Public Use
  Company Number: IT-PAR PHARMACEUTICAL, INC-2013SCPR005578

PATIENT
  Sex: 0

DRUGS (1)
  1. CLOMIPHENE CITRATE [Suspect]
     Indication: INFERTILITY
     Dosage: 50 MG FOR 5 DAYS (FROM DAY 2 OF MENSTRUAL CYCLE) X 2 CYCLES
     Route: 065

REACTIONS (3)
  - Congenital anomaly in offspring [Unknown]
  - Abortion induced [Unknown]
  - Maternal exposure before pregnancy [None]
